FAERS Safety Report 9610930 (Version 2)
Quarter: 2013Q4

REPORT INFORMATION
  Report Type: Report from Study
  Country: GB (occurrence: GB)
  Receive Date: 20131009
  Receipt Date: 20131112
  Transmission Date: 20140711
  Serious: Yes (Hospitalization)
  Sender: FDA-Public Use
  Company Number: GB-GLAXOSMITHKLINE-Z0021295A

PATIENT
  Age: 76 Year
  Sex: Female
  Weight: 67.4 kg

DRUGS (2)
  1. PREDNISONE [Suspect]
     Indication: CHRONIC LYMPHOCYTIC LEUKAEMIA REFRACTORY
     Dosage: 65MG SEE DOSAGE TEXT
     Route: 048
     Dates: start: 20120807, end: 20120811
  2. OFATUMUMAB [Suspect]
     Indication: CHRONIC LYMPHOCYTIC LEUKAEMIA REFRACTORY
     Route: 042
     Dates: start: 20121001, end: 20130610

REACTIONS (1)
  - Empyema [Recovered/Resolved]
